FAERS Safety Report 10029269 (Version 1)
Quarter: 2014Q1

REPORT INFORMATION
  Report Type: Spontaneous
  Country: PT (occurrence: PT)
  Receive Date: 20140321
  Receipt Date: 20140321
  Transmission Date: 20141002
  Serious: Yes (Hospitalization, Other)
  Sender: FDA-Public Use
  Company Number: PHHY2014PT031501

PATIENT
  Sex: 0

DRUGS (2)
  1. GILENYA [Suspect]
     Indication: MULTIPLE SCLEROSIS
     Dosage: 0.5 MG, QD
     Route: 048
     Dates: start: 20130131
  2. ORAL CONTRACEPTIVE NOS [Concomitant]

REACTIONS (7)
  - Optic neuritis [Recovered/Resolved with Sequelae]
  - Hypoaesthesia [Recovered/Resolved]
  - Paraesthesia [Recovering/Resolving]
  - Alopecia [Not Recovered/Not Resolved]
  - Depression [Recovering/Resolving]
  - Vision blurred [Recovered/Resolved with Sequelae]
  - Leukopenia [Recovering/Resolving]
